FAERS Safety Report 12523745 (Version 4)
Quarter: 2016Q3

REPORT INFORMATION
  Report Type: Report from Study
  Country: BE (occurrence: BE)
  Receive Date: 20160704
  Receipt Date: 20160816
  Transmission Date: 20161109
  Serious: Yes (Hospitalization)
  Sender: FDA-Public Use
  Company Number: BE-ROCHE-1786381

PATIENT
  Age: 71 Year
  Sex: Male

DRUGS (15)
  1. OBINUTUZUMAB [Suspect]
     Active Substance: OBINUTUZUMAB
     Indication: CHRONIC LYMPHOCYTIC LEUKAEMIA
     Route: 042
     Dates: start: 20160622, end: 20160622
  2. ZANTAC [Concomitant]
     Active Substance: RANITIDINE HYDROCHLORIDE
     Indication: BARRETT^S OESOPHAGUS
     Route: 065
     Dates: start: 20160524
  3. ZOLPIDEM [Concomitant]
     Active Substance: ZOLPIDEM\ZOLPIDEM TARTRATE
     Dosage: PREVENTION INSOMNIA
     Route: 065
     Dates: start: 2016
  4. RAMIPRIL. [Concomitant]
     Active Substance: RAMIPRIL
     Indication: HYPERTENSION
     Route: 065
     Dates: start: 2006
  5. PERFUSALGAN [Concomitant]
     Active Substance: ACETAMINOPHEN
     Dosage: BEFORE EVERY OBINUTUZUMAB ADMINISTRATION
     Route: 065
     Dates: start: 20160622
  6. TAVEGYL [Concomitant]
     Active Substance: CLEMASTINE FUMARATE
     Dosage: BEFORE EVERY OBINUTUZUMAB ADMINISTRATION
     Route: 065
     Dates: start: 20160622
  7. DAFALGAN [Concomitant]
     Active Substance: ACETAMINOPHEN
     Dosage: OBINUTUZUMAB INFUSION REACTION
     Route: 065
     Dates: start: 20160622, end: 20160622
  8. OBINUTUZUMAB [Suspect]
     Active Substance: OBINUTUZUMAB
     Route: 042
     Dates: start: 20160623, end: 20160623
  9. INEGY [Concomitant]
     Active Substance: EZETIMIBE\SIMVASTATIN
     Indication: HYPERLIPIDAEMIA
     Route: 065
     Dates: start: 2006
  10. TAMSULOSIN [Concomitant]
     Active Substance: TAMSULOSIN
     Indication: BENIGN PROSTATIC HYPERPLASIA
     Route: 065
     Dates: start: 20091003
  11. ACP-196 [Suspect]
     Active Substance: ACALABRUTINIB
     Indication: CHRONIC LYMPHOCYTIC LEUKAEMIA
     Dosage: RECEIVED FIRST DOSE AT 10:20
     Route: 048
     Dates: start: 20160524
  12. PANTOMED (PANTOPRAZOLE) [Concomitant]
     Indication: BARRETT^S OESOPHAGUS
     Route: 065
     Dates: start: 2007, end: 20160523
  13. CIPROXIN [Concomitant]
     Active Substance: CIPROFLOXACIN
     Indication: PROSTATITIS
     Route: 065
     Dates: start: 20160427, end: 20160517
  14. METFORMIN [Concomitant]
     Active Substance: METFORMIN HYDROCHLORIDE
     Indication: TYPE 2 DIABETES MELLITUS
     Route: 065
     Dates: start: 2002
  15. SOLU-MEDROL [Concomitant]
     Active Substance: METHYLPREDNISOLONE SODIUM SUCCINATE
     Dosage: BEFORE EVERY OBINUTUZUMAB ADMINISTRATION
     Route: 065
     Dates: start: 20160622

REACTIONS (1)
  - Hepatitis toxic [Recovered/Resolved]

NARRATIVE: CASE EVENT DATE: 20160627
